FAERS Safety Report 20593655 (Version 1)
Quarter: 2022Q1

REPORT INFORMATION
  Report Type: Spontaneous
  Country: PL (occurrence: PL)
  Receive Date: 20220315
  Receipt Date: 20220315
  Transmission Date: 20220423
  Serious: Yes (Other)
  Sender: FDA-Public Use
  Company Number: PL-Accord-256869

PATIENT
  Age: 40 Year
  Sex: Female

DRUGS (6)
  1. ATORVASTATIN [Interacting]
     Active Substance: ATORVASTATIN
     Indication: Dyslipidaemia
  2. QUETIAPINE [Interacting]
     Active Substance: QUETIAPINE
     Indication: Depression
     Dosage: INCREASED THE DOSE OF QUETIAPINE BY 50 MG;
  3. FLUCONAZOLE [Interacting]
     Active Substance: FLUCONAZOLE
     Indication: Vaginal discharge
     Route: 048
  4. CRANBERRY [Interacting]
     Active Substance: CRANBERRY
     Indication: Dysuria
     Dosage: PREPARATION CONTAINING THE CRANBERRY EXTRACT
  5. BIOTIN [Concomitant]
     Active Substance: BIOTIN
     Indication: Alopecia
  6. PAROXETINE [Concomitant]
     Active Substance: PAROXETINE
     Indication: Depression
     Dosage: THEN 40 MG /DAY

REACTIONS (5)
  - Drug interaction [Unknown]
  - Epistaxis [Unknown]
  - Platelet count decreased [Unknown]
  - Leukopenia [Recovering/Resolving]
  - Hypothyroidism [Recovering/Resolving]
